FAERS Safety Report 12936087 (Version 1)
Quarter: 2016Q4

REPORT INFORMATION
  Report Type: Spontaneous
  Country: US (occurrence: US)
  Receive Date: 20161111
  Receipt Date: 20161111
  Transmission Date: 20170207
  Serious: Yes (Disabling)
  Sender: FDA-Public Use
  Company Number: None

PATIENT
  Age: 64 Year
  Sex: Male
  Weight: 81 kg

DRUGS (3)
  1. MULTI VIT/MINERAL SUPPLEMENTS [Concomitant]
  2. VENTOLIN HFA [Suspect]
     Active Substance: ALBUTEROL SULFATE
     Indication: DYSPNOEA
     Dosage: ?          OTHER STRENGTH:MCG;QUANTITY:200 INHALATION(S);?
     Route: 055
     Dates: start: 20161025, end: 20161030
  3. VITAMIN SUPPLEMENTS [Concomitant]
     Active Substance: VITAMINS

REACTIONS (9)
  - Dysphagia [None]
  - Dysphonia [None]
  - Cough [None]
  - Throat tightness [None]
  - Bronchospasm [None]
  - Paradoxical drug reaction [None]
  - Dizziness [None]
  - Condition aggravated [None]
  - Dyspnoea [None]

NARRATIVE: CASE EVENT DATE: 20161025
